FAERS Safety Report 5479822-4 (Version None)
Quarter: 2007Q4

REPORT INFORMATION
  Report Type: 
  Country: None (occurrence: None)
  Receive Date: 20071008
  Receipt Date: 20070925
  Transmission Date: 20080405
  Serious: Yes (Other)
  Sender: FDA-Public Use
  Company Number: US-PURDUE-DEU_2007_0003669

PATIENT
  Age: 23 Month
  Sex: Female
  Weight: 14 kg

DRUGS (5)
  1. MORPHINE SULFATE [Suspect]
     Indication: PROCEDURAL PAIN
     Dosage: 28 MG/HR, SEE TEXT
     Route: 042
  2. THIOPENTAL SODIUM [Suspect]
     Dosage: 50 MG, SEE TEXT
     Route: 042
  3. SUXAMETHONIUM CHLORIDE [Suspect]
     Dosage: 30 MG, SEE TEXT
     Route: 042
  4. VECURONIUM BROMIDE [Suspect]
     Dosage: 2 MG, SEE TEXT
     Route: 042
  5. MIDAZOLAM HCL [Suspect]
     Dosage: 5 MG/HR, SEE TEXT
     Route: 042

REACTIONS (4)
  - ATRIOVENTRICULAR BLOCK FIRST DEGREE [None]
  - BRADYCARDIA [None]
  - ELECTROCARDIOGRAM QRS COMPLEX PROLONGED [None]
  - PULSE ABSENT [None]
